FAERS Safety Report 10785515 (Version 1)
Quarter: 2015Q1

REPORT INFORMATION
  Report Type: Spontaneous
  Country: GB (occurrence: None)
  Receive Date: 20150209
  Receipt Date: 20150209
  Transmission Date: 20150721
  Serious: Yes (Life-Threatening, Other)
  Sender: FDA-Public Use
  Company Number: GB2015011684

PATIENT
  Age: 34 Year
  Sex: Female
  Weight: 75.29 kg

DRUGS (1)
  1. SEROXAT (PAROXETINE HYDROCHLORIDE) UNKNOWN [Suspect]
     Active Substance: PAROXETINE HYDROCHLORIDE
     Indication: DEPRESSION
     Route: 048
     Dates: start: 19990301, end: 20150105

REACTIONS (23)
  - Withdrawal syndrome [None]
  - Vomiting [None]
  - Dry mouth [None]
  - Depression [None]
  - Mania [None]
  - Decreased appetite [None]
  - Hyperhidrosis [None]
  - Abnormal dreams [None]
  - Condition aggravated [None]
  - Sleep terror [None]
  - Vision blurred [None]
  - Dizziness [None]
  - Suicidal ideation [None]
  - Social avoidant behaviour [None]
  - Headache [None]
  - Lethargy [None]
  - Tremor [None]
  - Insomnia [None]
  - Paraesthesia [None]
  - Anxiety [None]
  - Thirst [None]
  - Diarrhoea [None]
  - Peripheral coldness [None]

NARRATIVE: CASE EVENT DATE: 20150105
